FAERS Safety Report 21555320 (Version 2)
Quarter: 2022Q4

REPORT INFORMATION
  Report Type: Report from Study
  Country: US (occurrence: US)
  Receive Date: 20221104
  Receipt Date: 20221108
  Transmission Date: 20230112
  Serious: Yes (Hospitalization)
  Sender: FDA-Public Use
  Company Number: US-HORIZON THERAPEUTICS-HZN-2022-008488

PATIENT

DRUGS (2)
  1. RAVICTI [Suspect]
     Active Substance: GLYCEROL PHENYLBUTYRATE
     Indication: Urea cycle disorder
     Dosage: TAKE 0.7 ML THREE TIMES DAILY WITH BREAST MILK. RAVICIT SHOULD BE ADMINISTERED JUST PRIOR TO BREASTF
     Route: 065
     Dates: start: 20221012
  2. CITRULLINE 200 [Concomitant]
     Dosage: 200 MG/4 G POWD PACK
     Route: 065
     Dates: start: 2022

REACTIONS (3)
  - Infantile spitting up [Unknown]
  - Condition aggravated [Unknown]
  - Illness [Not Recovered/Not Resolved]

NARRATIVE: CASE EVENT DATE: 20220101
